FAERS Safety Report 13174256 (Version 1)
Quarter: 2017Q1

REPORT INFORMATION
  Report Type: Spontaneous
  Country: US (occurrence: US)
  Receive Date: 20170201
  Receipt Date: 20170201
  Transmission Date: 20170428
  Serious: Yes (Hospitalization, Other)
  Sender: FDA-Public Use
  Company Number: US-JNJFOC-20170117295

PATIENT
  Age: 66 Year
  Sex: Male
  Weight: 83.92 kg

DRUGS (23)
  1. LIORESAL [Suspect]
     Active Substance: BACLOFEN
     Indication: PAIN MANAGEMENT
     Route: 037
     Dates: start: 201604
  2. LIORESAL [Suspect]
     Active Substance: BACLOFEN
     Indication: PAIN MANAGEMENT
     Route: 037
     Dates: start: 20121218
  3. GABAPENTIN. [Concomitant]
     Active Substance: GABAPENTIN
     Indication: PRODUCT USED FOR UNKNOWN INDICATION
     Route: 065
  4. VALIUM [Concomitant]
     Active Substance: DIAZEPAM
     Indication: PRODUCT USED FOR UNKNOWN INDICATION
     Route: 065
  5. MESTINON [Concomitant]
     Active Substance: PYRIDOSTIGMINE BROMIDE
     Indication: PRODUCT USED FOR UNKNOWN INDICATION
     Dosage: 60MG/5ML
     Route: 065
  6. IBUPROFEN. [Suspect]
     Active Substance: IBUPROFEN
     Route: 065
  7. LIORESAL [Suspect]
     Active Substance: BACLOFEN
     Indication: PAIN MANAGEMENT
     Route: 037
     Dates: start: 201604
  8. LIORESAL [Suspect]
     Active Substance: BACLOFEN
     Indication: STIFF PERSON SYNDROME
     Route: 037
     Dates: start: 20121218
  9. LIORESAL [Suspect]
     Active Substance: BACLOFEN
     Indication: MUSCLE SPASTICITY
     Route: 037
     Dates: start: 2016, end: 2016
  10. LIORESAL [Suspect]
     Active Substance: BACLOFEN
     Indication: PAIN MANAGEMENT
     Route: 037
     Dates: start: 201604
  11. LIORESAL [Suspect]
     Active Substance: BACLOFEN
     Indication: PAIN MANAGEMENT
     Route: 037
     Dates: start: 2016, end: 2016
  12. LIORESAL [Suspect]
     Active Substance: BACLOFEN
     Indication: STIFF PERSON SYNDROME
     Route: 037
     Dates: start: 201604
  13. LIORESAL [Suspect]
     Active Substance: BACLOFEN
     Indication: MUSCLE SPASTICITY
     Route: 037
     Dates: start: 201604
  14. LIORESAL [Suspect]
     Active Substance: BACLOFEN
     Indication: MUSCLE SPASTICITY
     Route: 037
     Dates: start: 20121218
  15. ZANAFLEX [Suspect]
     Active Substance: TIZANIDINE HYDROCHLORIDE
     Indication: MUSCLE SPASTICITY
     Route: 048
     Dates: end: 201604
  16. IBUPROFEN. [Suspect]
     Active Substance: IBUPROFEN
     Indication: PAIN
     Route: 065
     Dates: end: 201604
  17. DOXAZOSIN [Concomitant]
     Active Substance: DOXAZOSIN\DOXAZOSIN MESYLATE
     Indication: PRODUCT USED FOR UNKNOWN INDICATION
     Route: 065
  18. LIORESAL [Suspect]
     Active Substance: BACLOFEN
     Indication: STIFF PERSON SYNDROME
     Route: 037
     Dates: start: 201604
  19. LIORESAL [Suspect]
     Active Substance: BACLOFEN
     Indication: STIFF PERSON SYNDROME
     Route: 037
     Dates: start: 201604
  20. LIORESAL [Suspect]
     Active Substance: BACLOFEN
     Indication: MUSCLE SPASTICITY
     Route: 037
     Dates: start: 201604
  21. LIORESAL [Suspect]
     Active Substance: BACLOFEN
     Indication: MUSCLE SPASTICITY
     Route: 037
     Dates: start: 201604
  22. LASIX [Concomitant]
     Active Substance: FUROSEMIDE
     Indication: PRODUCT USED FOR UNKNOWN INDICATION
     Route: 065
  23. LIORESAL [Suspect]
     Active Substance: BACLOFEN
     Indication: STIFF PERSON SYNDROME
     Route: 037
     Dates: start: 2016, end: 2016

REACTIONS (14)
  - Arrhythmia [Recovered/Resolved]
  - Pain [Recovering/Resolving]
  - Hallucination [Recovering/Resolving]
  - Hallucination, auditory [Recovered/Resolved]
  - Body temperature decreased [Recovering/Resolving]
  - Hypertension [Recovering/Resolving]
  - Psychotic disorder [Recovering/Resolving]
  - Personality disorder [Recovering/Resolving]
  - Respiratory rate decreased [Recovering/Resolving]
  - Heart rate decreased [Recovering/Resolving]
  - Overdose [Recovering/Resolving]
  - Muscle spasms [Recovering/Resolving]
  - Unresponsive to stimuli [Recovering/Resolving]
  - Memory impairment [Recovering/Resolving]

NARRATIVE: CASE EVENT DATE: 201604
